FAERS Safety Report 5084525-4 (Version None)
Quarter: 2006Q3

REPORT INFORMATION
  Report Type: 
  Country: None (occurrence: None)
  Receive Date: 20060814
  Receipt Date: 20060725
  Transmission Date: 20061208
  Serious: Yes (Other)
  Sender: FDA-Public Use
  Company Number: ES200608000081

PATIENT
  Age: 43 Year
  Sex: Female

DRUGS (4)
  1. DULOXETINE HYDROCHLORIDE) DULOXETINE HYDROCHLORIDE) CAPSULE [Suspect]
     Indication: DEPRESSION
     Dosage: 60 MG DAILY (1/D) ORAL
     Route: 048
     Dates: start: 20060511, end: 20060513
  2. LANTUS [Concomitant]
  3. NOVOMIX (INSULIN ASPART) [Concomitant]
  4. TARDYFERON /GFR/ (FERROUS SULFATE) [Concomitant]

REACTIONS (10)
  - CONDITION AGGRAVATED [None]
  - DIABETES MELLITUS [None]
  - DRY EYE [None]
  - DRY MOUTH [None]
  - DYSSTASIA [None]
  - FOOD INTOLERANCE [None]
  - NAUSEA [None]
  - PROSTRATION [None]
  - VISUAL ACUITY REDUCED [None]
  - VOMITING [None]
